FAERS Safety Report 18761202 (Version 1)
Quarter: 2021Q1

REPORT INFORMATION
  Report Type: Spontaneous
  Country: US (occurrence: US)
  Receive Date: 20210120
  Receipt Date: 20210120
  Transmission Date: 20210419
  Serious: Yes (Hospitalization, Other)
  Sender: FDA-Public Use
  Company Number: US-LUPIN PHARMACEUTICALS INC.-2021-00243

PATIENT
  Sex: Female

DRUGS (2)
  1. DULOXETINE. [Suspect]
     Active Substance: DULOXETINE
     Indication: FIBROMYALGIA
     Dosage: UNK
     Route: 065
  2. DULOXETINE. [Suspect]
     Active Substance: DULOXETINE
     Indication: DEPRESSION
     Dosage: 60 MILLIGRAM, QD
     Route: 065

REACTIONS (6)
  - Atrial fibrillation [Recovered/Resolved]
  - Atrial tachycardia [Recovered/Resolved]
  - Cognitive disorder [Recovered/Resolved]
  - Hypertension [Recovered/Resolved]
  - Cyanosis [Recovered/Resolved]
  - Ischaemia [Recovered/Resolved]
